FAERS Safety Report 20322552 (Version 1)
Quarter: 2022Q1

REPORT INFORMATION
  Report Type: Spontaneous
  Country: US (occurrence: None)
  Receive Date: 20220111
  Receipt Date: 20220111
  Transmission Date: 20220424
  Serious: Yes (Hospitalization)
  Sender: FDA-Public Use
  Company Number: None

PATIENT
  Age: 76 Year
  Sex: Male

DRUGS (2)
  1. ASPIRIN [Suspect]
     Active Substance: ASPIRIN
     Indication: Stent placement
     Dates: start: 20211115
  2. TICAGRELOR [Suspect]
     Active Substance: TICAGRELOR
     Indication: Stent placement
     Dates: start: 20211109

REACTIONS (3)
  - Gastrointestinal haemorrhage [None]
  - Acute myocardial infarction [None]
  - Haemoglobin decreased [None]

NARRATIVE: CASE EVENT DATE: 20211208
